FAERS Safety Report 16376827 (Version 1)
Quarter: 2019Q3

REPORT INFORMATION
  Report Type: Spontaneous
  Country: US (occurrence: US)
  Receive Date: 20190530
  Receipt Date: 20190530
  Transmission Date: 20191004
  Serious: Yes (Hospitalization)
  Sender: FDA-Public Use
  Company Number: None

PATIENT
  Age: 56 Year
  Sex: Male
  Weight: 94.5 kg

DRUGS (19)
  1. VITAMIN B12 1000 MCG IM MONTHLY [Concomitant]
  2. CHOLECALCIFEROL 50,000 UNITS PO WEEKLY [Concomitant]
  3. ABILIFY 30 MG PO DAILY [Concomitant]
  4. FLUOXETINE 20 MG PO QID [Concomitant]
  5. ENTYVIO 300 MG IV EVERY 4 WEEKS [Concomitant]
  6. AMLODIPINE 10 MG PO DAILY [Concomitant]
  7. FENTANYL 50 MCG/H PATCH Q OTHER DAY [Concomitant]
  8. TESTOSTERONE 200 MG SC Q 21 DAYS [Concomitant]
  9. BUDESONIDE EC 3MG PO DAILY [Concomitant]
  10. LOPERAMIDE 4 MG PO QID [Concomitant]
  11. FERROUS SULFATE 325 MG PO BID [Concomitant]
  12. LOMOTIL 2 TABS PO QID [Concomitant]
  13. GATTEX [Suspect]
     Active Substance: TEDUGLUTIDE\WATER
     Indication: SHORT-BOWEL SYNDROME
     Route: 058
     Dates: start: 20180507
  14. MYCOPHENOLATE 360MG PO BID [Concomitant]
  15. OPIUM TINCTURE 6 ML PO QID [Concomitant]
  16. ATENOLOL 50 MG PO DAILY [Concomitant]
  17. OMEPRAZOLE 40 MG PO BID [Concomitant]
  18. BUSPIRONE 15 MG PO DAILY [Concomitant]
  19. GABAPENTIN 1200 MG PO DAILY [Concomitant]

REACTIONS (6)
  - Nephrolithiasis [None]
  - Cholelithiasis [None]
  - Cholecystitis chronic [None]
  - Gallbladder enlargement [None]
  - Dilatation intrahepatic duct acquired [None]
  - Abdominal adhesions [None]

NARRATIVE: CASE EVENT DATE: 20180926
